FAERS Safety Report 5245760-5 (Version None)
Quarter: 2007Q1

REPORT INFORMATION
  Report Type: 
  Country: None (occurrence: None)
  Receive Date: 20070223
  Receipt Date: 20070213
  Transmission Date: 20070707
  Serious: Yes (Other)
  Sender: FDA-Public Use
  Company Number: JP-PFIZER INC-2007012664

PATIENT
  Age: 46 Year
  Sex: Female

DRUGS (2)
  1. DOXORUBICIN HYDROCHLORIDE POWDER, STERILE [Suspect]
     Indication: BREAST CANCER
  2. DOCETAXEL [Suspect]
     Indication: BREAST CANCER
     Dosage: TEXT:60-75 MG/M2

REACTIONS (2)
  - OEDEMA [None]
  - SCLERODERMA [None]
